FAERS Safety Report 4417914-9 (Version None)
Quarter: 2004Q2

REPORT INFORMATION
  Report Type: 
  Country: None (occurrence: None)
  Receive Date: 20040622
  Receipt Date: 20030410
  Transmission Date: 20050107
  Serious: Yes (Hospitalization)
  Sender: FDA-Public Use
  Company Number: 03P-163-0216599-00

PATIENT
  Age: 81 Year
  Sex: Female

DRUGS (1)
  1. MAVIK [Suspect]
     Indication: HYPERTENSION
     Dosage: 2 MG, 1 IN 1 D, PER ORAL
     Route: 048

REACTIONS (1)
  - PANCREATITIS ACUTE [None]
